FAERS Safety Report 14534611 (Version 2)
Quarter: 2018Q1

REPORT INFORMATION
  Report Type: Spontaneous
  Country: JP (occurrence: JP)
  Receive Date: 20180215
  Receipt Date: 20180223
  Transmission Date: 20180509
  Serious: Yes (Life-Threatening, Other)
  Sender: FDA-Public Use
  Company Number: JP-ROCHE-2072348

PATIENT
  Age: 79 Year
  Sex: Male

DRUGS (1)
  1. ACTILYSE [Suspect]
     Active Substance: ALTEPLASE
     Indication: EMBOLIC STROKE
     Route: 042

REACTIONS (2)
  - Stress cardiomyopathy [Unknown]
  - Pulmonary oedema [Unknown]
